FAERS Safety Report 7451804-2 (Version None)
Quarter: 2011Q2

REPORT INFORMATION
  Report Type: 
  Country: None (occurrence: None)
  Receive Date: 20110502
  Receipt Date: 20100827
  Transmission Date: 20111010
  Serious: No
  Sender: FDA-Public Use
  Company Number: US-ASTRAZENECA-2010SE18883

PATIENT
  Age: 52 Year
  Sex: Male

DRUGS (10)
  1. KLONOPIN [Concomitant]
     Indication: ANXIETY
  2. ARTHROTEC [Concomitant]
     Dosage: TWO DAILY, 75 MGS
  3. ACTOS [Concomitant]
     Indication: DIABETES MELLITUS
  4. KLONOPIN [Concomitant]
     Indication: PANIC DISORDER
  5. SEROQUEL [Suspect]
     Indication: SLEEP DISORDER
     Route: 048
  6. NEXIUM [Suspect]
     Indication: GASTROOESOPHAGEAL REFLUX DISEASE
     Route: 048
  7. NEURONTIN [Concomitant]
     Indication: DIABETIC NEUROPATHY
  8. GLUCOTROL XL [Concomitant]
     Indication: DIABETES MELLITUS
  9. ATENOLOL [Concomitant]
     Indication: BLOOD PRESSURE
  10. LORCET-HD [Concomitant]
     Indication: PAIN

REACTIONS (2)
  - DIABETES MELLITUS [None]
  - NEURALGIA [None]
